FAERS Safety Report 21739193 (Version 2)
Quarter: 2023Q1

REPORT INFORMATION
  Report Type: Spontaneous
  Country: US (occurrence: US)
  Receive Date: 20221216
  Receipt Date: 20230316
  Transmission Date: 20230417
  Serious: Yes (Other)
  Sender: FDA-Public Use
  Company Number: US-BRISTOL-MYERS SQUIBB COMPANY-2022-153241

PATIENT
  Age: 67 Year
  Sex: Female

DRUGS (2)
  1. OPDIVO [Suspect]
     Active Substance: NIVOLUMAB
     Indication: Squamous cell carcinoma
     Dosage: EVERY 21 DAYS
  2. YERVOY [Suspect]
     Active Substance: IPILIMUMAB
     Indication: Squamous cell carcinoma
     Dosage: EVERY 21 DAYS

REACTIONS (2)
  - Malignant neoplasm progression [Unknown]
  - Off label use [Unknown]

NARRATIVE: CASE EVENT DATE: 20220901
